FAERS Safety Report 7476813-9 (Version None)
Quarter: 2011Q2

REPORT INFORMATION
  Report Type: 
  Country: None (occurrence: None)
  Receive Date: 20110512
  Receipt Date: 20110506
  Transmission Date: 20111010
  Serious: Yes (Other)
  Sender: FDA-Public Use
  Company Number: US-PFIZER INC-2011098003

PATIENT
  Sex: Female
  Weight: 115.19 kg

DRUGS (5)
  1. METHOTREXATE [Suspect]
  2. HYDROXYCHLOROQUINE SULFATE [Suspect]
     Dosage: UNK
  3. HUMIRA [Suspect]
     Indication: ANKYLOSING SPONDYLITIS
     Dosage: 40 MG/ 0.8 ML PRE-FILLED SYRINGE
     Dates: start: 20090501
  4. HUMIRA [Suspect]
     Indication: PSORIATIC ARTHROPATHY
     Dosage: 40 MG/ 0.8 ML PRE-FILLED SYRINGE
     Dates: start: 20090501, end: 20110101
  5. SULFASALAZINE [Suspect]
     Dosage: UNK

REACTIONS (2)
  - OSTEOARTHRITIS [None]
  - HEPATIC STEATOSIS [None]
